FAERS Safety Report 8419819-5 (Version None)
Quarter: 2012Q2

REPORT INFORMATION
  Report Type: 
  Country: None (occurrence: None)
  Receive Date: 20120607
  Receipt Date: 20120531
  Transmission Date: 20120825
  Serious: Yes (Disabling)
  Sender: FDA-Public Use
  Company Number: PHEH2011US009266

PATIENT
  Sex: Female

DRUGS (5)
  1. PROZAC [Concomitant]
     Dosage: 20 MG, UNK
  2. NEURONTIN [Suspect]
     Indication: PAIN
     Dosage: 300 MG, TID
     Dates: start: 20111201
  3. PROPRANOLOL [Concomitant]
     Dosage: 60 MG, UNK
  4. GILENYA [Suspect]
     Indication: MULTIPLE SCLEROSIS
     Dosage: 0.5 MG, QD
     Route: 048
     Dates: start: 20110901
  5. NICODERM [Suspect]
     Dosage: UNK UKN, UNK
     Route: 062

REACTIONS (9)
  - APPLICATION SITE SWELLING [None]
  - APPLICATION SITE PRURITUS [None]
  - LYMPHOCYTE COUNT DECREASED [None]
  - GAIT DISTURBANCE [None]
  - VOMITING [None]
  - UPPER RESPIRATORY TRACT INFECTION [None]
  - STARING [None]
  - NAUSEA [None]
  - RED BLOOD CELL COUNT INCREASED [None]
